FAERS Safety Report 15970180 (Version 1)
Quarter: 2019Q1

REPORT INFORMATION
  Report Type: Spontaneous
  Country: GB (occurrence: GB)
  Receive Date: 20190215
  Receipt Date: 20190215
  Transmission Date: 20190418
  Serious: Yes (Hospitalization)
  Sender: FDA-Public Use
  Company Number: GB-ALLERGAN-1906608US

PATIENT
  Age: 56 Year
  Sex: Female
  Weight: 69 kg

DRUGS (2)
  1. ESCITALOPRAM OXALATE - BP [Suspect]
     Active Substance: ESCITALOPRAM OXALATE
     Indication: ANXIETY
     Dosage: 10 MG, QD
     Route: 048
  2. ELLESTE-SOLO [Concomitant]
     Indication: HORMONE REPLACEMENT THERAPY
     Dosage: 80 ?G, QD (24 HRS)
     Route: 062

REACTIONS (2)
  - Circulatory collapse [Unknown]
  - Bradyarrhythmia [Recovered/Resolved]

NARRATIVE: CASE EVENT DATE: 20190110
